FAERS Safety Report 4591376-3 (Version None)
Quarter: 2005Q1

REPORT INFORMATION
  Report Type: 
  Country: None (occurrence: None)
  Receive Date: 20050222
  Receipt Date: 20050104
  Transmission Date: 20050727
  Serious: Yes (Other)
  Sender: FDA-Public Use
  Company Number: 2004110310

PATIENT
  Age: 52 Year
  Sex: Female

DRUGS (5)
  1. CELEBREX [Suspect]
     Indication: ARTHRITIS
     Dosage: 400 MG (200 MG, AS NEEDED), ORAL
     Route: 048
     Dates: start: 20000120, end: 20040929
  2. MULTIVITAMINS (ASCORBIC ACID, ERGOCALCIFEROL, FOLIC ACID, NICOTINAMIDE [Concomitant]
  3. HYDROXYCHLOROQUINE PHOSPHATE (HYDROXYCHLOROQUINE PHOSPHATE) [Concomitant]
  4. CALCIUM (CALCIUM) [Concomitant]
  5. TOCOHEROL (TOCOPHEROL) [Concomitant]

REACTIONS (3)
  - CARDIOLIPIN ANTIBODY [None]
  - HYPERCOAGULATION [None]
  - RETINAL VASCULAR THROMBOSIS [None]
